FAERS Safety Report 15077508 (Version 1)
Quarter: 2018Q2

REPORT INFORMATION
  Report Type: Spontaneous
  Country: US (occurrence: US)
  Receive Date: 20180627
  Receipt Date: 20180627
  Transmission Date: 20180711
  Serious: No
  Sender: FDA-Public Use
  Company Number: US-BAYER-2018-120893

PATIENT
  Age: 62 Year
  Sex: Male

DRUGS (1)
  1. BETASERON [Suspect]
     Active Substance: INTERFERON BETA-1B
     Dosage: 0.3 MG, UNK
     Dates: start: 20130625, end: 20180625

REACTIONS (3)
  - Injection site erythema [None]
  - Injection site pain [None]
  - Drug dose omission [None]

NARRATIVE: CASE EVENT DATE: 20180625
